FAERS Safety Report 26169114 (Version 1)
Quarter: 2025Q4

REPORT INFORMATION
  Report Type: Spontaneous
  Country: US (occurrence: None)
  Receive Date: 20251216
  Receipt Date: 20251216
  Transmission Date: 20260117
  Serious: Yes (Hospitalization)
  Sender: FDA-CTU
  Company Number: None

PATIENT
  Sex: Female

DRUGS (11)
  1. LENALIDOMIDE [Suspect]
     Active Substance: LENALIDOMIDE
     Indication: Plasma cell myeloma
     Dosage: FREQUENCY : DAILY;?FREQ: TAKE ONE CAPSULE BY MOUTH DAILY ON DAYS 1-21 OF EACH 28-DAY CYCLE. TAKE AT THE SAME TIME ?EVERY DAY.
     Route: 048
     Dates: start: 20250313
  2. ACYCLOVIR [Concomitant]
     Active Substance: ACYCLOVIR
  3. AMLODIPINE TAB5MG [Concomitant]
  4. ANORO ELLIPT AER 62.5-25 [Concomitant]
  5. ATORVASTATIN [Concomitant]
     Active Substance: ATORVASTATIN
  6. BUPROPION TAB 150MG SR [Concomitant]
  7. D3-50 CAP 50000UNT [Concomitant]
  8. DULOXETINE CAP 60MG [Concomitant]
  9. ELIQUIS [Concomitant]
     Active Substance: APIXABAN
  10. GABAPENTIN TAB 600MG [Concomitant]
  11. SOTALOL HCL TAB 80MG [Concomitant]

REACTIONS (2)
  - Chronic obstructive pulmonary disease [None]
  - Therapy interrupted [None]
